FAERS Safety Report 15274938 (Version 1)
Quarter: 2018Q3

REPORT INFORMATION
  Report Type: Spontaneous
  Country: US (occurrence: US)
  Receive Date: 20180814
  Receipt Date: 20180814
  Transmission Date: 20181010
  Serious: No
  Sender: FDA-Public Use
  Company Number: US-TEVA-2018-US-941033

PATIENT
  Sex: Female

DRUGS (1)
  1. AUSTEDO [Suspect]
     Active Substance: DEUTETRABENAZINE
     Route: 065

REACTIONS (5)
  - Abdominal rigidity [Unknown]
  - Drug ineffective [Unknown]
  - Dyskinesia [Unknown]
  - Anger [Unknown]
  - Tremor [Unknown]
